FAERS Safety Report 11573771 (Version 1)
Quarter: 2015Q3

REPORT INFORMATION
  Report Type: Report from Study
  Country: HU (occurrence: HU)
  Receive Date: 20150929
  Receipt Date: 20150929
  Transmission Date: 20151125
  Serious: Yes (Life-Threatening, Hospitalization, Other)
  Sender: FDA-Public Use
  Company Number: HU-GLAXOSMITHKLINE-B1017854A

PATIENT
  Age: 57 Year
  Sex: Female
  Weight: 77 kg

DRUGS (8)
  1. GANETESPIB [Suspect]
     Active Substance: GANETESPIB
     Dosage: 150 MG/M2, UNK
     Route: 042
     Dates: start: 20140619
  2. SALBUTAMOL SULPHATE [Suspect]
     Active Substance: ALBUTEROL SULFATE
     Indication: PRODUCT USED FOR UNKNOWN INDICATION
     Dosage: UNK, QID
     Dates: start: 20071106, end: 20140626
  3. DOCETAXEL. [Suspect]
     Active Substance: DOCETAXEL
     Dosage: 75 MG/M2, UNK
     Route: 042
     Dates: start: 20140605
  4. THEOSPIREX [Suspect]
     Active Substance: THEOPHYLLINE ANHYDROUS
     Indication: PRODUCT USED FOR UNKNOWN INDICATION
     Dosage: 150 MG, BID
     Route: 048
     Dates: start: 20071106, end: 20140626
  5. GANETESPIB [Suspect]
     Active Substance: GANETESPIB
     Indication: NON-SMALL CELL LUNG CANCER
     Dosage: 150 MG/M2, CYC
     Route: 042
     Dates: start: 20140515
  6. SPIRIVA [Concomitant]
     Active Substance: TIOTROPIUM BROMIDE MONOHYDRATE
     Dates: start: 20071106
  7. DOCETAXEL. [Suspect]
     Active Substance: DOCETAXEL
     Indication: NON-SMALL CELL LUNG CANCER
     Dosage: 75 MG/M2, CYC
     Route: 042
     Dates: start: 20140515
  8. GANETESPIB [Suspect]
     Active Substance: GANETESPIB
     Dosage: 150 MG/M2, UNK
     Route: 042
     Dates: start: 20140605

REACTIONS (1)
  - Atrial fibrillation [Recovered/Resolved]

NARRATIVE: CASE EVENT DATE: 20140626
